FAERS Safety Report 9046901 (Version 1)
Quarter: 2013Q1

REPORT INFORMATION
  Report Type: Spontaneous
  Country: US (occurrence: None)
  Receive Date: 20130129
  Receipt Date: 20130129
  Transmission Date: 20140127
  Serious: Yes (Other)
  Sender: FDA-Public Use
  Company Number: None

PATIENT
  Age: 19 Year
  Sex: Male
  Weight: 80 kg

DRUGS (1)
  1. RO-ACCUTANE [Suspect]
     Indication: ACNE
     Dosage: 20MG    2
     Dates: start: 20041231, end: 20050502

REACTIONS (14)
  - Erectile dysfunction [None]
  - Alopecia [None]
  - Arthralgia [None]
  - Joint crepitation [None]
  - Depression [None]
  - Anxiety [None]
  - Social phobia [None]
  - Nasal congestion [None]
  - Skin fragility [None]
  - Scar [None]
  - Ear pain [None]
  - Cognitive disorder [None]
  - Memory impairment [None]
  - Disturbance in attention [None]
